FAERS Safety Report 5105901-7 (Version None)
Quarter: 2006Q3

REPORT INFORMATION
  Report Type: 
  Country: None (occurrence: None)
  Receive Date: 20060912
  Receipt Date: 20060825
  Transmission Date: 20061208
  Serious: Yes (Hospitalization)
  Sender: FDA-Public Use
  Company Number: US200603004533

PATIENT
  Age: 50 Year
  Sex: Female
  Weight: 139.2 kg

DRUGS (2)
  1. ZYPREXA [Suspect]
     Dosage: 5 MG
     Dates: start: 20021201, end: 20040401
  2. TRIAMTERENE AND HYDROCHLOROTHIAZID (HYDROCHLOROTHIAZIDE, TRIAMTERENE) [Concomitant]

REACTIONS (11)
  - BLOOD CHOLESTEROL INCREASED [None]
  - BLOOD GLUCOSE FLUCTUATION [None]
  - CATHETERISATION CARDIAC [None]
  - CONDITION AGGRAVATED [None]
  - DIABETES MELLITUS [None]
  - DIABETES MELLITUS INADEQUATE CONTROL [None]
  - DIARRHOEA [None]
  - DISTURBANCE IN ATTENTION [None]
  - INCONTINENCE [None]
  - SWELLING [None]
  - WEIGHT INCREASED [None]
